FAERS Safety Report 5978193-4 (Version None)
Quarter: 2008Q4

REPORT INFORMATION
  Report Type: 
  Country: None (occurrence: None)
  Receive Date: 20081204
  Receipt Date: 20081201
  Transmission Date: 20090506
  Serious: Yes (Other)
  Sender: FDA-Public Use
  Company Number: US-BIOGENIDEC-2008BI021645

PATIENT
  Age: 64 Year
  Sex: Female

DRUGS (12)
  1. AVONEX [Suspect]
     Indication: MULTIPLE SCLEROSIS
     Route: 030
     Dates: start: 20070913
  2. SANCTURA [Concomitant]
     Indication: DRUG USE FOR UNKNOWN INDICATION
  3. OXYTROL [Concomitant]
     Indication: DRUG USE FOR UNKNOWN INDICATION
  4. ATIVAN [Concomitant]
     Indication: DRUG USE FOR UNKNOWN INDICATION
  5. ASPIRIN [Concomitant]
     Indication: DRUG USE FOR UNKNOWN INDICATION
  6. ACETAMINOPHEN AND HYDROCODONE BITARTRATE [Concomitant]
     Indication: DRUG USE FOR UNKNOWN INDICATION
  7. POTASSIUM CHLORIDE [Concomitant]
     Indication: DRUG USE FOR UNKNOWN INDICATION
  8. ANTIVERT [Concomitant]
     Indication: DIZZINESS
  9. VITAMIN E [Concomitant]
     Indication: DRUG USE FOR UNKNOWN INDICATION
  10. NASONEX SPRAY [Concomitant]
     Indication: NASAL POLYPS
  11. PROTONIX [Concomitant]
     Indication: DRUG USE FOR UNKNOWN INDICATION
  12. PHENERGAN HCL [Concomitant]
     Indication: NAUSEA

REACTIONS (18)
  - BLOOD CHOLESTEROL INCREASED [None]
  - BRONCHITIS [None]
  - CARDIAC FAILURE CONGESTIVE [None]
  - DEPRESSION [None]
  - DERMATITIS [None]
  - FIBROMYALGIA [None]
  - GASTROOESOPHAGEAL REFLUX DISEASE [None]
  - HIATUS HERNIA [None]
  - HYPERTENSION [None]
  - IRRITABLE BOWEL SYNDROME [None]
  - MULTIPLE ALLERGIES [None]
  - MYOCARDIAL INFARCTION [None]
  - NIGHT BLINDNESS [None]
  - OSTEOARTHRITIS [None]
  - RHEUMATOID ARTHRITIS [None]
  - SINUSITIS [None]
  - URINARY INCONTINENCE [None]
  - VERTIGO [None]
